FAERS Safety Report 25889264 (Version 2)
Quarter: 2025Q4

REPORT INFORMATION
  Report Type: Spontaneous
  Country: EU (occurrence: EU)
  Receive Date: 20251007
  Receipt Date: 20251027
  Transmission Date: 20260118
  Serious: Yes (Death, Hospitalization, Other)
  Sender: ABBVIE
  Company Number: EU-ABBVIE-6491640

PATIENT
  Age: 65 Year

DRUGS (4)
  1. VENETOCLAX [Suspect]
     Active Substance: VENETOCLAX
     Indication: Acute myeloid leukaemia
     Dosage: 400MG DAY 1-7
     Route: 048
     Dates: start: 202103
  2. VENETOCLAX [Suspect]
     Active Substance: VENETOCLAX
     Indication: Acute myeloid leukaemia
     Dosage: 31 CYCLES
     Route: 048
     Dates: end: 202501
  3. DECITABINE [Suspect]
     Active Substance: DECITABINE
     Indication: Acute myeloid leukaemia
     Dosage: DAY 1-5
     Route: 065
     Dates: start: 202101
  4. DECITABINE [Suspect]
     Active Substance: DECITABINE
     Indication: Acute myeloid leukaemia
     Dosage: 31 CYCLES
     Route: 065
     Dates: end: 202501

REACTIONS (6)
  - Death [Fatal]
  - General physical health deterioration [Unknown]
  - Bicytopenia [Unknown]
  - Pleural effusion [Unknown]
  - Skin ulcer [Unknown]
  - Acute myeloid leukaemia [Unknown]

NARRATIVE: CASE EVENT DATE: 20211201
